FAERS Safety Report 6355709-X (Version None)
Quarter: 2009Q3

REPORT INFORMATION
  Report Type: 
  Country: None (occurrence: None)
  Receive Date: 20090910
  Receipt Date: 20090902
  Transmission Date: 20100115
  Serious: Yes (Other)
  Sender: FDA-Public Use
  Company Number: 2009AL005786

PATIENT
  Age: 2 Year
  Sex: Male

DRUGS (1)
  1. FEVERALL [Suspect]
     Indication: PYREXIA
     Dosage: 15 MG/KG; PO
     Route: 048
     Dates: start: 20090822, end: 20090823

REACTIONS (3)
  - LIP SWELLING [None]
  - SWELLING FACE [None]
  - URTICARIA [None]
